FAERS Safety Report 13281275 (Version 1)
Quarter: 2017Q1

REPORT INFORMATION
  Report Type: Spontaneous
  Country: None (occurrence: US)
  Receive Date: 20170301
  Receipt Date: 20170301
  Transmission Date: 20170428
  Serious: No
  Sender: FDA-Public Use
  Company Number: US-AMAG PHARMACEUTICALS, INC.-AMAG201600568

PATIENT

DRUGS (5)
  1. BENADRYL [Concomitant]
     Active Substance: DIPHENHYDRAMINE HYDROCHLORIDE
     Dosage: UNK
  2. MAKENA [Suspect]
     Active Substance: HYDROXYPROGESTERONE CAPROATE
     Indication: PREMATURE DELIVERY
     Dosage: 250 MG, WEEKLY
     Route: 030
     Dates: start: 20160128, end: 20160325
  3. VITAMIN B6 [Concomitant]
     Active Substance: PYRIDOXINE HYDROCHLORIDE
     Dosage: 25 MG, QD
  4. TRIAMCINOLONE CREAM [Concomitant]
     Active Substance: TRIAMCINOLONE
     Dosage: UNK
     Route: 061
  5. PRENATAL VITAMINS [Concomitant]
     Active Substance: VITAMINS
     Dosage: UNK

REACTIONS (3)
  - Injection site rash [Unknown]
  - Injection site pruritus [Not Recovered/Not Resolved]
  - Injection site urticaria [Unknown]

NARRATIVE: CASE EVENT DATE: 20160303
